FAERS Safety Report 10344770 (Version 1)
Quarter: 2014Q3

REPORT INFORMATION
  Report Type: Spontaneous
  Country: US (occurrence: None)
  Receive Date: 20140723
  Receipt Date: 20140723
  Transmission Date: 20150326
  Serious: Yes (Hospitalization)
  Sender: FDA-Public Use
  Company Number: IPC201407-000357

PATIENT
  Age: 43 Year
  Sex: Male

DRUGS (4)
  1. HYDROXYCHLOROQUINE SULFATE (HYDROXYCHLOROQUINE SULFATE) (HYDROXYCHLOROQUINE SULFATE) [Suspect]
     Active Substance: HYDROXYCHLOROQUINE SULFATE
     Indication: Q FEVER
  2. RIFAMPIN. [Concomitant]
     Active Substance: RIFAMPIN
  3. CIPROFLOXACIN (CIPROFLOXCIN) (CIPROFLOXACIN) [Suspect]
     Active Substance: CIPROFLOXACIN
     Indication: Q FEVER
  4. DOXYCYCLINE. [Suspect]
     Active Substance: DOXYCYCLINE

REACTIONS (11)
  - Psychotic disorder [None]
  - Hepatic enzyme increased [None]
  - Hallucination, auditory [None]
  - Nausea [None]
  - Dyspnoea [None]
  - Hallucination, tactile [None]
  - Hypertensive emergency [None]
  - Night sweats [None]
  - Gastrointestinal disorder [None]
  - Hallucination, visual [None]
  - Vomiting [None]
